FAERS Safety Report 6055777-9 (Version None)
Quarter: 2009Q1

REPORT INFORMATION
  Report Type: 
  Country: None (occurrence: None)
  Receive Date: 20090128
  Receipt Date: 20090119
  Transmission Date: 20090719
  Serious: Yes (Hospitalization)
  Sender: FDA-Public Use
  Company Number: AU-ELI_LILLY_AND_COMPANY-AU200901003052

PATIENT
  Sex: Male
  Weight: 30 kg

DRUGS (7)
  1. STRATTERA [Suspect]
     Indication: ABNORMAL BEHAVIOUR
     Dosage: 40 MG, DAILY (1/D)
     Route: 048
     Dates: start: 20080519, end: 20080725
  2. LOVAN [Concomitant]
  3. OMEPRAZOLE [Concomitant]
  4. RANITIDINE [Concomitant]
  5. SERETIDE [Concomitant]
     Dosage: 125/25 MDI
     Route: 055
  6. SINGULAIR [Concomitant]
  7. VENTOLIN [Concomitant]

REACTIONS (5)
  - AGGRESSION [None]
  - AGITATION [None]
  - DECREASED APPETITE [None]
  - NIGHT SWEATS [None]
  - WEIGHT DECREASED [None]
